FAERS Safety Report 14510575 (Version 1)
Quarter: 2018Q1

REPORT INFORMATION
  Report Type: Report from Study
  Country: None (occurrence: CO)
  Receive Date: 20180209
  Receipt Date: 20180209
  Transmission Date: 20180509
  Serious: Yes (Hospitalization, Other)
  Sender: FDA-Public Use
  Company Number: CO-ABBVIE-18K-036-2251323-00

PATIENT
  Age: 30 Year
  Sex: Female
  Weight: 44 kg

DRUGS (4)
  1. HUMIRA [Suspect]
     Active Substance: ADALIMUMAB
     Indication: CROHN^S DISEASE
     Route: 058
     Dates: start: 20160824
  2. SALOFALK [Concomitant]
     Active Substance: MESALAMINE
     Indication: PRODUCT USED FOR UNKNOWN INDICATION
     Dosage: 4G/ 60 ML
  3. HUMIRA [Suspect]
     Active Substance: ADALIMUMAB
     Route: 058
  4. SALOFALK [Concomitant]
     Active Substance: MESALAMINE
     Indication: PRODUCT USED FOR UNKNOWN INDICATION

REACTIONS (5)
  - Oophorectomy [Not Recovered/Not Resolved]
  - Crohn^s disease [Recovering/Resolving]
  - Adnexa uteri mass [Recovering/Resolving]
  - Laparotomy [Unknown]
  - Pelvic pain [Recovering/Resolving]

NARRATIVE: CASE EVENT DATE: 20180118
